FAERS Safety Report 9001529 (Version 2)
Quarter: 2013Q1

REPORT INFORMATION
  Report Type: Spontaneous
  Country: US (occurrence: US)
  Receive Date: 20130107
  Receipt Date: 20130111
  Transmission Date: 20140127
  Serious: Yes (Death)
  Sender: FDA-Public Use
  Company Number: US-PFIZER INC-2013004403

PATIENT
  Age: 53 Year
  Sex: Female

DRUGS (3)
  1. AMLODIPINE BESILATE [Suspect]
  2. THEOPHYLLINE [Suspect]
  3. CHARCOAL, ACTIVATED [Suspect]

REACTIONS (1)
  - Medication error [Fatal]
